FAERS Safety Report 4975549-3 (Version None)
Quarter: 2006Q2

REPORT INFORMATION
  Report Type: 
  Country: None (occurrence: None)
  Receive Date: 20060410
  Receipt Date: 20060322
  Transmission Date: 20061013
  Serious: Yes (Hospitalization)
  Sender: FDA-Public Use
  Company Number: JP200602004169

PATIENT
  Age: 70 Year
  Sex: Male

DRUGS (9)
  1. HUMULIN R [Suspect]
     Indication: DIABETES MELLITUS NON-INSULIN-DEPENDENT
     Dosage: SEE IMAGE
     Dates: start: 20060130, end: 20060130
  2. HUMULIN R [Suspect]
     Indication: DIABETES MELLITUS NON-INSULIN-DEPENDENT
     Dosage: SEE IMAGE
     Dates: start: 20060131, end: 20060131
  3. HUMULIN R [Suspect]
     Indication: DIABETES MELLITUS NON-INSULIN-DEPENDENT
     Dosage: SEE IMAGE
     Dates: start: 20060201, end: 20060209
  4. HUMULIN R [Suspect]
     Indication: DIABETES MELLITUS NON-INSULIN-DEPENDENT
     Dosage: SEE IMAGE
     Dates: start: 20060201, end: 20060209
  5. BAKTAR (SULFAMETHOXAZOLE, TRIMETHOPRIM) TABLET [Concomitant]
  6. ITRIZOLE (ITRACONAZOLE) CAPSULE [Concomitant]
  7. NEUPOGEN [Concomitant]
  8. TIENAM /SWE/ (CILASTATIN, IMIPENEM) VIAL [Concomitant]
  9. VANCOMYCIN (VANCOMYCIN) VIAL [Concomitant]

REACTIONS (2)
  - PULMONARY CONGESTION [None]
  - RASH GENERALISED [None]
